FAERS Safety Report 19125983 (Version 1)
Quarter: 2021Q2

REPORT INFORMATION
  Report Type: Report from Study
  Country: BR (occurrence: BR)
  Receive Date: 20210412
  Receipt Date: 20210412
  Transmission Date: 20210717
  Serious: Yes (Hospitalization, Other)
  Sender: FDA-Public Use
  Company Number: BR-TAKEDA-2021TUS021914

PATIENT
  Age: 34 Year
  Sex: Male

DRUGS (3)
  1. NIMESULIDE [Concomitant]
     Active Substance: NIMESULIDE
     Indication: INFLAMMATION
     Dosage: 500 MILLIGRAM, QD
     Route: 065
     Dates: start: 20210124
  2. HEMO?8R [Suspect]
     Active Substance: ANTIHEMOPHILIC FACTOR, HUMAN RECOMBINANT
     Indication: FACTOR VIII DEFICIENCY
     Dosage: 1500 INTERNATIONAL UNIT, 3/WEEK
     Route: 042
     Dates: start: 20190118
  3. TRANSAMIN [Concomitant]
     Active Substance: TRANEXAMIC ACID
     Indication: INTERNAL HAEMORRHAGE
     Dosage: 100 MILLIGRAM, Q8HR
     Route: 065
     Dates: start: 20210124

REACTIONS (7)
  - Internal haemorrhage [Recovering/Resolving]
  - Inflammation [Recovering/Resolving]
  - Bacterial infection [Recovering/Resolving]
  - Joint effusion [Recovering/Resolving]
  - Haemorrhage [Recovering/Resolving]
  - Haemarthrosis [Recovering/Resolving]
  - Joint swelling [Recovering/Resolving]

NARRATIVE: CASE EVENT DATE: 20210122
